FAERS Safety Report 8596160 (Version 4)
Quarter: 2014Q2

REPORT INFORMATION
  Report Type: Spontaneous
  Country: ES (occurrence: ES)
  Receive Date: 20120605
  Receipt Date: 20140428
  Transmission Date: 20141212
  Serious: Yes (Death, Life-Threatening, Other)
  Sender: FDA-Public Use
  Company Number: ES-JNJFOC-20120520521

PATIENT
  Age: 65 Year
  Sex: Male
  Weight: 104 kg

DRUGS (4)
  1. REMICADE [Suspect]
     Indication: HIDRADENITIS
     Route: 042
     Dates: start: 201203
  2. REMICADE [Suspect]
     Indication: HIDRADENITIS
     Route: 042
  3. REMICADE [Suspect]
     Indication: PYODERMA
     Route: 042
     Dates: start: 201203
  4. REMICADE [Suspect]
     Indication: PYODERMA
     Route: 042

REACTIONS (2)
  - Death [Fatal]
  - Pulmonary embolism [Unknown]
